FAERS Safety Report 7244629-4 (Version None)
Quarter: 2011Q1

REPORT INFORMATION
  Report Type: 
  Country: None (occurrence: None)
  Receive Date: 20110125
  Receipt Date: 20110115
  Transmission Date: 20110831
  Serious: Yes (Death, Other)
  Sender: FDA-Public Use
  Company Number: JP-MERCK-1101USA00272

PATIENT
  Sex: Female

DRUGS (2)
  1. DALACIN [Concomitant]
     Route: 065
  2. DECADRON [Suspect]
     Dosage: DAILY DOSAGE UNKNOWN
     Route: 048

REACTIONS (8)
  - GASTROINTESTINAL HAEMORRHAGE [None]
  - PERITONITIS [None]
  - GLAUCOMA [None]
  - DEATH [None]
  - BLINDNESS [None]
  - GASTROINTESTINAL PERFORATION [None]
  - SEPSIS [None]
  - CATARACT [None]
